FAERS Safety Report 24120458 (Version 1)
Quarter: 2024Q3

REPORT INFORMATION
  Report Type: Spontaneous
  Country: CA (occurrence: CA)
  Receive Date: 20240722
  Receipt Date: 20240722
  Transmission Date: 20241017
  Serious: Yes (Hospitalization)
  Sender: GENMAB
  Company Number: CA-ABBVIE-5841105

PATIENT
  Age: 56 Year
  Sex: Female

DRUGS (1)
  1. EPKINLY [Suspect]
     Active Substance: EPCORITAMAB-BYSP
     Indication: Diffuse large B-cell lymphoma
     Dosage: EVERY 1 WEEKS
     Route: 058

REACTIONS (1)
  - Hospitalisation [Unknown]
